FAERS Safety Report 15018460 (Version 1)
Quarter: 2018Q2

REPORT INFORMATION
  Report Type: Spontaneous
  Country: US (occurrence: US)
  Receive Date: 20180615
  Receipt Date: 20180615
  Transmission Date: 20180711
  Serious: No
  Sender: FDA-Public Use
  Company Number: US-009507513-1805USA015096

PATIENT
  Age: 66 Year
  Sex: Male

DRUGS (3)
  1. HYDROCORTONE [Suspect]
     Active Substance: HYDROCORTISONE
     Indication: HYPOPITUITARISM
     Dosage: AT TWICE THE PHYSIOLOGICAL DOSE FOR 1 WEEK
     Route: 048
  2. HYDROCORTONE [Suspect]
     Active Substance: HYDROCORTISONE
     Dosage: SUBSEQUENTLY A PHYSIOLOGICAL DOSE
     Route: 048
  3. PREDNISONE. [Concomitant]
     Active Substance: PREDNISONE
     Dosage: 200 MG, QD
     Route: 048

REACTIONS (1)
  - Product use in unapproved indication [Unknown]
